FAERS Safety Report 25838695 (Version 1)
Quarter: 2025Q3

REPORT INFORMATION
  Report Type: Report from Study
  Country: EU (occurrence: EU)
  Receive Date: 20250924
  Receipt Date: 20250924
  Transmission Date: 20251021
  Serious: Yes (Death, Other)
  Sender: ABBVIE
  Company Number: EU-JNJFOC-20250920095

PATIENT

DRUGS (1)
  1. IBRUTINIB [Suspect]
     Active Substance: IBRUTINIB
     Indication: Waldenstrom^s macroglobulinaemia
     Route: 048
     Dates: start: 2010, end: 2024

REACTIONS (4)
  - Cardiovascular disorder [Fatal]
  - Haemorrhage [Unknown]
  - Embolism [Unknown]
  - Atrial fibrillation [Unknown]
